FAERS Safety Report 6741987-1 (Version None)
Quarter: 2010Q2

REPORT INFORMATION
  Report Type: 
  Country: None (occurrence: None)
  Receive Date: 20100526
  Receipt Date: 20100511
  Transmission Date: 20101027
  Serious: Yes (Life-Threatening, Hospitalization)
  Sender: FDA-Public Use
  Company Number: JP-MYLANLABS-2010S1008285

PATIENT
  Age: 60 Year
  Sex: Male

DRUGS (3)
  1. EPERISONE [Suspect]
     Indication: SUICIDE ATTEMPT
     Route: 048
  2. TRIAZOLAM [Suspect]
     Indication: SUICIDE ATTEMPT
     Route: 048
  3. NIFEDIPINE [Concomitant]
     Route: 065

REACTIONS (3)
  - ELECTROCARDIOGRAM QT PROLONGED [None]
  - INTENTIONAL OVERDOSE [None]
  - TORSADE DE POINTES [None]
